FAERS Safety Report 7247149-6 (Version None)
Quarter: 2011Q1

REPORT INFORMATION
  Report Type: 
  Country: None (occurrence: None)
  Receive Date: 20110127
  Receipt Date: 20100928
  Transmission Date: 20110831
  Serious: No
  Sender: FDA-Public Use
  Company Number: US-BAUSCH-2010BL005468

PATIENT
  Age: 78 Year
  Sex: Female

DRUGS (6)
  1. SYSTANE [Concomitant]
     Indication: DRY EYE
     Route: 047
  2. OPTIVE [Concomitant]
     Indication: DRY EYE
     Route: 047
  3. DRY EYE RELIEF [Concomitant]
     Indication: DRY EYE
     Route: 047
  4. ALAWAY [Suspect]
     Indication: EYE PRURITUS
     Route: 047
     Dates: start: 20100909, end: 20100915
  5. ALAWAY [Suspect]
     Indication: DRY EYE
     Route: 047
     Dates: start: 20100909, end: 20100915
  6. ALAWAY [Suspect]
     Indication: EYE SWELLING
     Route: 047
     Dates: start: 20100909, end: 20100915

REACTIONS (1)
  - NASAL CONGESTION [None]
